FAERS Safety Report 17106704 (Version 1)
Quarter: 2019Q4

REPORT INFORMATION
  Report Type: Spontaneous
  Country: JP (occurrence: JP)
  Receive Date: 20191203
  Receipt Date: 20191203
  Transmission Date: 20200122
  Serious: Yes (Hospitalization, Other)
  Sender: FDA-Public Use
  Company Number: JP-ASTRAZENECA-2019SF30732

PATIENT
  Age: 88 Year
  Sex: Male
  Weight: 49 kg

DRUGS (11)
  1. SPIRONOLACTONE. [Concomitant]
     Active Substance: SPIRONOLACTONE
     Route: 048
  2. HALFDIGOXIN [Concomitant]
     Active Substance: DIGOXIN
  3. EPINASTINE. [Concomitant]
     Active Substance: EPINASTINE HYDROCHLORIDE
     Dates: start: 20190411, end: 20190828
  4. ONGLYZA [Suspect]
     Active Substance: SAXAGLIPTIN HYDROCHLORIDE
     Indication: TYPE 2 DIABETES MELLITUS
     Route: 048
     Dates: start: 20190307, end: 20190830
  5. LIXIANA [Concomitant]
     Active Substance: EDOXABAN TOSYLATE
  6. MAGNESIUM OXIDE. [Concomitant]
     Active Substance: MAGNESIUM OXIDE
     Dates: start: 20190307, end: 20190430
  7. ZINC OXIDE. [Concomitant]
     Active Substance: ZINC OXIDE
     Dates: start: 20190725, end: 20190725
  8. CALONAL [Concomitant]
     Active Substance: ACETAMINOPHEN
     Dates: start: 20190307, end: 20190326
  9. PREDNISOLONE. [Suspect]
     Active Substance: PREDNISOLONE
     Indication: PEMPHIGOID
     Dosage: 15.0MG UNKNOWN
     Route: 065
     Dates: start: 20190905
  10. CARVEDILOL. [Concomitant]
     Active Substance: CARVEDILOL
  11. LOXOPROFEN SODIUM HYDRATE [Concomitant]
     Active Substance: LOXOPROFEN SODIUM DIHYDRATE
     Dates: start: 20190307, end: 20190307

REACTIONS (2)
  - Diabetes mellitus [Not Recovered/Not Resolved]
  - Pemphigoid [Recovering/Resolving]

NARRATIVE: CASE EVENT DATE: 201907
